FAERS Safety Report 6601593-6 (Version None)
Quarter: 2010Q1

REPORT INFORMATION
  Report Type: 
  Country: None (occurrence: None)
  Receive Date: 20100225
  Receipt Date: 20091208
  Transmission Date: 20100710
  Serious: No
  Sender: FDA-Public Use
  Company Number: US-KINGPHARMUSA00001-K200901545

PATIENT
  Sex: Female
  Weight: 90.703 kg

DRUGS (12)
  1. FLECTOR [Suspect]
     Indication: SPINAL DISORDER
     Dosage: 1 PATCH, SINGLE
     Route: 061
     Dates: start: 20091207, end: 20091207
  2. NEXIUM [Concomitant]
     Indication: REFLUX OESOPHAGITIS
     Dosage: UNK
  3. KAPIDEX [Concomitant]
     Indication: REFLUX OESOPHAGITIS
     Dosage: UNK
  4. VALIUM [Concomitant]
     Dosage: 5 MG, TID
  5. VICODIN [Concomitant]
     Indication: HEADACHE
     Dosage: UNK
  6. ADDERALL XR 10 [Concomitant]
     Indication: DEPRESSION
     Dosage: 30 MG, UNK
  7. ADDERALL XR 10 [Concomitant]
     Indication: POST-TRAUMATIC STRESS DISORDER
  8. ASPIRIN [Concomitant]
     Dosage: 81 MG, UNK
  9. ZOLOFT [Concomitant]
     Dosage: UNK
  10. DEPAKOTE ER [Concomitant]
     Indication: CONVULSION
     Dosage: 1000 MG, QHS
  11. WELLBUTRIN [Concomitant]
  12. SEROQUEL [Concomitant]
     Dosage: 200 MG, QHS

REACTIONS (5)
  - ARTHRALGIA [None]
  - ASTHENIA [None]
  - BONE PAIN [None]
  - HEADACHE [None]
  - MYALGIA [None]
